FAERS Safety Report 9611017 (Version 2)
Quarter: 2013Q4

REPORT INFORMATION
  Report Type: Spontaneous
  Country: JP (occurrence: JP)
  Receive Date: 20131009
  Receipt Date: 20131106
  Transmission Date: 20140711
  Serious: Yes (Hospitalization)
  Sender: FDA-Public Use
  Company Number: JP-GLAXOSMITHKLINE-B0914523A

PATIENT
  Age: 33 Year
  Sex: Female

DRUGS (9)
  1. LAMICTAL [Suspect]
     Indication: AFFECT LABILITY
     Dosage: 25MG PER DAY
     Route: 048
     Dates: start: 20130516, end: 20130523
  2. LAMICTAL [Suspect]
     Indication: AFFECT LABILITY
     Dosage: 25MG TWICE PER DAY
     Route: 048
     Dates: start: 20130523, end: 20130530
  3. LAMICTAL [Suspect]
     Indication: AFFECT LABILITY
     Dosage: 25MG THREE TIMES PER DAY
     Route: 048
     Dates: start: 20130530, end: 20130606
  4. LAMICTAL [Suspect]
     Indication: AFFECT LABILITY
     Dosage: 25MG FOUR TIMES PER DAY
     Route: 048
     Dates: start: 20130606, end: 20130618
  5. SELENICA-R [Suspect]
     Indication: AFFECT LABILITY
     Dosage: 400MG TWICE PER DAY
     Route: 048
     Dates: start: 20130401, end: 20130618
  6. LIMAS [Concomitant]
     Dosage: 200MG THREE TIMES PER DAY
     Route: 048
     Dates: start: 20130401, end: 20130618
  7. SEROQUEL [Concomitant]
     Route: 048
     Dates: start: 20130401, end: 20130618
  8. CALONAL [Concomitant]
     Route: 065
  9. LEVOTOMIN [Concomitant]
     Route: 065

REACTIONS (6)
  - Drug reaction with eosinophilia and systemic symptoms [Recovering/Resolving]
  - Pyrexia [Unknown]
  - Pharyngeal erythema [Unknown]
  - Pharyngeal oedema [Unknown]
  - Rash [Recovering/Resolving]
  - Drug eruption [Unknown]
